FAERS Safety Report 13222252 (Version 1)
Quarter: 2017Q1

REPORT INFORMATION
  Report Type: Spontaneous
  Country: US (occurrence: US)
  Receive Date: 20170211
  Receipt Date: 20170211
  Transmission Date: 20170428
  Serious: No
  Sender: FDA-Public Use
  Company Number: US-ACORDA-ACO_132361_2017

PATIENT
  Age: 58 Year
  Sex: Female

DRUGS (3)
  1. AMPYRA [Suspect]
     Active Substance: DALFAMPRIDINE
     Indication: MULTIPLE SCLEROSIS
  2. AMPYRA [Suspect]
     Active Substance: DALFAMPRIDINE
     Indication: WALKING DISABILITY
     Dosage: 10 MG, BID
     Route: 048
  3. TYSABRI [Suspect]
     Active Substance: NATALIZUMAB
     Indication: MULTIPLE SCLEROSIS
     Dosage: 300 MG, MONTHLY
     Route: 042

REACTIONS (9)
  - Therapy cessation [Not Recovered/Not Resolved]
  - Medical procedure [Unknown]
  - Pancreatic disorder [Unknown]
  - Pancreatic cyst [Not Recovered/Not Resolved]
  - Nephrolithiasis [Unknown]
  - Infection [Unknown]
  - Dermal cyst [Recovered/Resolved]
  - Cyst removal [Unknown]
  - Laboratory test abnormal [Unknown]

NARRATIVE: CASE EVENT DATE: 201510
